FAERS Safety Report 4669124-8 (Version None)
Quarter: 2005Q2

REPORT INFORMATION
  Report Type: 
  Country: None (occurrence: None)
  Receive Date: 20050519
  Receipt Date: 20040511
  Transmission Date: 20051028
  Serious: Yes (Hospitalization)
  Sender: FDA-Public Use
  Company Number: ENTC2004-0084

PATIENT
  Age: 66 Year
  Sex: Male

DRUGS (1)
  1. STALEVO 100 [Suspect]
     Indication: PARKINSON'S DISEASE
     Dosage: 150 MG TDS ORAL
     Route: 048
     Dates: start: 20040101, end: 20040224

REACTIONS (3)
  - CHOLELITHIASIS [None]
  - GASTRITIS [None]
  - WEIGHT DECREASED [None]
